FAERS Safety Report 7339011-5 (Version None)
Quarter: 2011Q1

REPORT INFORMATION
  Report Type: 
  Country: None (occurrence: None)
  Receive Date: 20110308
  Receipt Date: 20110304
  Transmission Date: 20110831
  Serious: Yes (Hospitalization)
  Sender: FDA-Public Use
  Company Number: FR-PFIZER INC-2011049014

PATIENT
  Age: 26 Year
  Sex: Male

DRUGS (1)
  1. CHAMPIX [Suspect]
     Indication: SMOKING CESSATION THERAPY
     Dosage: 1 MG, UNK
     Dates: start: 20110201, end: 20110201

REACTIONS (6)
  - INSOMNIA [None]
  - DELIRIUM [None]
  - HALLUCINATION, AUDITORY [None]
  - OBSESSIVE THOUGHTS [None]
  - PARANOIA [None]
  - DISSOCIATION [None]
